FAERS Safety Report 5259110-1 (Version None)
Quarter: 2007Q1

REPORT INFORMATION
  Report Type: 
  Country: None (occurrence: None)
  Receive Date: 20070305
  Receipt Date: 20070219
  Transmission Date: 20070707
  Serious: Yes (Hospitalization)
  Sender: FDA-Public Use
  Company Number: 2006S1000144

PATIENT
  Age: 77 Year
  Sex: Male
  Weight: 90 kg

DRUGS (11)
  1. CUBICIN [Suspect]
     Indication: ENDOCARDITIS
     Dosage: 618 MG
  2. CUBICIN [Suspect]
     Indication: STAPHYLOCOCCAL BACTERAEMIA
     Dosage: 618 MG
  3. WARFARIN SODIUM [Concomitant]
  4. RIFAMPIN [Concomitant]
  5. ZYVOX [Concomitant]
  6. CELEBREX [Concomitant]
  7. TOPROL-XL [Concomitant]
  8. LIPITOR [Concomitant]
  9. PANTOPRAZOLE SODIUM [Concomitant]
  10. ROBAXIN [Concomitant]
  11. VICODIN [Concomitant]

REACTIONS (4)
  - ALDOLASE INCREASED [None]
  - BLOOD CREATINE PHOSPHOKINASE INCREASED [None]
  - INTERNATIONAL NORMALISED RATIO INCREASED [None]
  - PROTHROMBIN TIME PROLONGED [None]
